FAERS Safety Report 18253552 (Version 1)
Quarter: 2020Q3

REPORT INFORMATION
  Report Type: Spontaneous
  Country: CN (occurrence: CN)
  Receive Date: 20200910
  Receipt Date: 20200910
  Transmission Date: 20201103
  Serious: Yes (Hospitalization)
  Sender: FDA-Public Use
  Company Number: CN-JNJFOC-20200847577

PATIENT
  Age: 17 Year
  Sex: Male

DRUGS (4)
  1. PALIPERIDONE. [Suspect]
     Active Substance: PALIPERIDONE
     Route: 048
  2. PALIPERIDONE. [Suspect]
     Active Substance: PALIPERIDONE
     Indication: SCHIZOPHRENIA
     Route: 048
  3. OLANZAPINE. [Concomitant]
     Active Substance: OLANZAPINE
     Indication: SCHIZOPHRENIA
  4. PALIPERIDONE. [Suspect]
     Active Substance: PALIPERIDONE
     Route: 048

REACTIONS (2)
  - Blood prolactin increased [Unknown]
  - Fibrin D dimer increased [Recovered/Resolved]
